FAERS Safety Report 15995688 (Version 1)
Quarter: 2019Q1

REPORT INFORMATION
  Report Type: Spontaneous
  Country: FR (occurrence: FR)
  Receive Date: 20190222
  Receipt Date: 20190222
  Transmission Date: 20190418
  Serious: Yes (Hospitalization, Other)
  Sender: FDA-Public Use
  Company Number: FR-EMD SERONO-9046874

PATIENT
  Age: 61 Year
  Sex: Female

DRUGS (8)
  1. DEDROGYL [Concomitant]
     Active Substance: CALCIFEDIOL
     Indication: PRODUCT USED FOR UNKNOWN INDICATION
     Dosage: 6 DROPS
  2. SEROPLEX [Concomitant]
     Active Substance: ESCITALOPRAM OXALATE
     Indication: DEPRESSED MOOD
     Dates: start: 20180426
  3. INEXIUM                            /01479302/ [Concomitant]
     Active Substance: ESOMEPRAZOLE MAGNESIUM
     Indication: PRODUCT USED FOR UNKNOWN INDICATION
  4. NEURONTIN [Concomitant]
     Active Substance: GABAPENTIN
     Indication: PRODUCT USED FOR UNKNOWN INDICATION
  5. REBIF [Suspect]
     Active Substance: INTERFERON BETA-1A
     Indication: RELAPSING-REMITTING MULTIPLE SCLEROSIS
     Dosage: CARTRIDGES, 22 MICROGRAM OR 0.5 ML
     Dates: start: 200712
  6. FUROSEMIDE. [Concomitant]
     Active Substance: FUROSEMIDE
     Indication: PRODUCT USED FOR UNKNOWN INDICATION
  7. LEVOTHYROX [Concomitant]
     Active Substance: LEVOTHYROXINE
     Indication: THYROID DISORDER
  8. ASPIRIN PROTECT [Concomitant]
     Active Substance: ASPIRIN
     Indication: PRODUCT USED FOR UNKNOWN INDICATION

REACTIONS (11)
  - Hypertension [Unknown]
  - Hypokinesia [Unknown]
  - Angiopathy [Unknown]
  - Retinal vein occlusion [Unknown]
  - Weight decreased [Unknown]
  - Mood swings [Unknown]
  - Retinal vein thrombosis [Unknown]
  - Glycosylated haemoglobin increased [Unknown]
  - Tachycardia [Unknown]
  - Decreased appetite [Unknown]
  - Ataxia [Unknown]

NARRATIVE: CASE EVENT DATE: 20180925
